FAERS Safety Report 9338492 (Version 3)
Quarter: 2013Q3

REPORT INFORMATION
  Report Type: Spontaneous
  Country: DE (occurrence: DE)
  Receive Date: 20130610
  Receipt Date: 20130729
  Transmission Date: 20140515
  Serious: Yes (Other)
  Sender: FDA-Public Use
  Company Number: DE-JNJFOC-20130600985

PATIENT
  Age: 76 Year
  Sex: Female
  Weight: 75 kg

DRUGS (2)
  1. XARELTO [Suspect]
     Indication: HIP ARTHROPLASTY
     Route: 048
     Dates: start: 20130517, end: 20130527
  2. XARELTO [Suspect]
     Indication: THROMBOSIS PROPHYLAXIS
     Route: 048
     Dates: start: 20130517, end: 20130527

REACTIONS (8)
  - Platelet count decreased [Not Recovered/Not Resolved]
  - Renal function test abnormal [Unknown]
  - Retinal haemorrhage [Recovering/Resolving]
  - Deep vein thrombosis [Not Recovered/Not Resolved]
  - Heparin-induced thrombocytopenia [Not Recovered/Not Resolved]
  - Oedema peripheral [Unknown]
  - Corneal oedema [Unknown]
  - Liver function test abnormal [Unknown]
